FAERS Safety Report 16106680 (Version 1)
Quarter: 2019Q1

REPORT INFORMATION
  Report Type: Spontaneous
  Country: US (occurrence: US)
  Receive Date: 20190322
  Receipt Date: 20190322
  Transmission Date: 20190418
  Serious: No
  Sender: FDA-Public Use
  Company Number: US-B.I. PHARMACEUTICALS,INC./RIDGEFIELD-2019-BI-011411

PATIENT
  Sex: Male

DRUGS (9)
  1. JARDIANCE [Suspect]
     Active Substance: EMPAGLIFLOZIN
     Indication: GLUCOSE TOLERANCE IMPAIRED
     Dosage: ADMINISTRATION CORRECT? YES ?ACTION(S) TAKEN WITH PRODUCT: DOSE NOT CHANGED
     Route: 048
     Dates: start: 201810
  2. XANAX [Concomitant]
     Active Substance: ALPRAZOLAM
     Indication: STRESS
     Dosage: 1 TABLET AT BEDTIME;  FORM STRENGTH: 1MG; FORMULATION: TABLET
     Route: 048
  3. ALLER TEC [Concomitant]
     Active Substance: CETIRIZINE HYDROCHLORIDE
     Indication: HYPERSENSITIVITY
     Route: 065
  4. LIPITOR [Concomitant]
     Active Substance: ATORVASTATIN CALCIUM
     Indication: BLOOD CHOLESTEROL INCREASED
     Dosage: 1 TABLET DAILY;  FORM STRENGTH: 10MG; FORMULATION: TABLET
     Route: 048
  5. COENZYME Q10 [Concomitant]
     Active Substance: UBIDECARENONE
     Indication: DRUG THERAPY
     Route: 065
  6. FAMOTIDINE. [Concomitant]
     Active Substance: FAMOTIDINE
     Indication: GASTROOESOPHAGEAL REFLUX DISEASE
     Dosage: FORM STRENGTH: 20MG; FORMULATION: TABLET
     Route: 048
  7. LISINOPRIL. [Concomitant]
     Active Substance: LISINOPRIL
     Indication: PROPHYLAXIS
     Dosage: 1 TABLET DAILY;  FORM STRENGTH: 2.5MG; FORMULATION: TABLET
     Route: 048
  8. MULTIVITAMIN [Concomitant]
     Active Substance: VITAMINS
     Indication: VITAMIN SUPPLEMENTATION
     Dosage: 1 TABLET DAILY;  FORMULATION: TABLET;
     Route: 048
  9. METFORMIN [Concomitant]
     Active Substance: METFORMIN HYDROCHLORIDE
     Indication: GLUCOSE TOLERANCE IMPAIRED
     Dosage: 1/2 TABLET IN THE MORNING AND 1 WHOLE TABLET AT NIGHT;  FORM STRENGTH: 1000MG; FORMULATION: TABLET
     Route: 048

REACTIONS (4)
  - Pain [Not Recovered/Not Resolved]
  - Off label use [Unknown]
  - Abnormal loss of weight [Not Recovered/Not Resolved]
  - Hunger [Not Recovered/Not Resolved]

NARRATIVE: CASE EVENT DATE: 2018
